FAERS Safety Report 7812603-2 (Version None)
Quarter: 2011Q4

REPORT INFORMATION
  Report Type: 
  Country: None (occurrence: None)
  Receive Date: 20111013
  Receipt Date: 20110729
  Transmission Date: 20120403
  Serious: No
  Sender: FDA-Public Use
  Company Number: US-NOVEN-11US002886

PATIENT
  Sex: Female

DRUGS (6)
  1. FENTANYL [Suspect]
     Dosage: 75 UG, Q72H
     Route: 062
     Dates: start: 20110601, end: 20110601
  2. MORPHINE [Concomitant]
     Dosage: 30 MG, UNK
     Route: 048
  3. FENTANYL [Suspect]
     Indication: PAIN
     Dosage: 50 UG, Q72H
     Route: 062
     Dates: start: 20110601
  4. OXYCONTIN [Concomitant]
     Dosage: 20 MG, UNK
     Route: 048
  5. FENTANYL [Suspect]
     Dosage: 50 UG, Q72H
     Route: 062
     Dates: start: 20110601, end: 20110601
  6. OXYCODONE HCL [Concomitant]
     Dosage: 5 MG, UNK
     Route: 048

REACTIONS (3)
  - MALAISE [None]
  - AMNESIA [None]
  - CONFUSIONAL STATE [None]
